FAERS Safety Report 10711215 (Version 6)
Quarter: 2015Q3

REPORT INFORMATION
  Report Type: Spontaneous
  Country: US (occurrence: US)
  Receive Date: 20150114
  Receipt Date: 20150702
  Transmission Date: 20151125
  Serious: Yes (Hospitalization, Congenital Anomaly, Other)
  Sender: FDA-Public Use
  Company Number: US-APOTEX-2014AP006154

PATIENT

DRUGS (2)
  1. PAXIL [Suspect]
     Active Substance: PAROXETINE HYDROCHLORIDE
     Indication: DEPRESSION
     Dosage: 20 MG, DAILY
     Route: 064
     Dates: start: 19980611, end: 19990928
  2. PAXIL [Suspect]
     Active Substance: PAROXETINE HYDROCHLORIDE
     Dosage: 10 MG, DAILY
     Route: 064
     Dates: start: 1998, end: 1999

REACTIONS (16)
  - Cardiac murmur functional [Unknown]
  - Hypophagia [Unknown]
  - Psychotic disorder [Unknown]
  - Foetal exposure during pregnancy [Unknown]
  - Speech disorder developmental [Unknown]
  - Attention deficit/hyperactivity disorder [Unknown]
  - Cardiac failure congestive [Unknown]
  - Coarctation of the aorta [Unknown]
  - Autism spectrum disorder [Unknown]
  - Atrial septal defect [Unknown]
  - Autism [Unknown]
  - Bicuspid aortic valve [Unknown]
  - Asthma [Unknown]
  - Patent ductus arteriosus [Unknown]
  - Aortic stenosis [Unknown]
  - Autism [Unknown]

NARRATIVE: CASE EVENT DATE: 20000411
